FAERS Safety Report 21096630 (Version 1)
Quarter: 2022Q3

REPORT INFORMATION
  Report Type: Report from Study
  Country: CA (occurrence: CA)
  Receive Date: 20220718
  Receipt Date: 20220718
  Transmission Date: 20221027
  Serious: Yes (Hospitalization, Other)
  Sender: FDA-Public Use
  Company Number: CA-JNJFOC-20220701558

PATIENT
  Age: 54 Year
  Sex: Female

DRUGS (2)
  1. STELARA [Suspect]
     Active Substance: USTEKINUMAB
     Indication: Crohn^s disease
     Route: 058
     Dates: start: 20190528
  2. STELARA [Suspect]
     Active Substance: USTEKINUMAB

REACTIONS (8)
  - Post procedural infection [Unknown]
  - Cholelithiasis [Recovered/Resolved]
  - Cholecystitis [Unknown]
  - Crohn^s disease [Recovered/Resolved]
  - Chest pain [Unknown]
  - Hepatic enzyme increased [Unknown]
  - Fatigue [Not Recovered/Not Resolved]
  - Product dose omission issue [Unknown]

NARRATIVE: CASE EVENT DATE: 20220629
